FAERS Safety Report 18559269 (Version 3)
Quarter: 2020Q4

REPORT INFORMATION
  Report Type: Spontaneous
  Country: US (occurrence: US)
  Receive Date: 20201130
  Receipt Date: 20201222
  Transmission Date: 20210114
  Serious: No
  Sender: FDA-Public Use
  Company Number: US-SA-2020SA277035

PATIENT

DRUGS (2)
  1. LOVENOX [Suspect]
     Active Substance: ENOXAPARIN SODIUM
     Dosage: 40 MG
     Route: 065
  2. NA [Concomitant]
     Active Substance: SODIUM

REACTIONS (2)
  - No adverse event [Unknown]
  - Device malfunction [Unknown]
